FAERS Safety Report 8066404-3 (Version None)
Quarter: 2012Q1

REPORT INFORMATION
  Report Type: 
  Country: None (occurrence: None)
  Receive Date: 20120124
  Receipt Date: 20120124
  Transmission Date: 20120608
  Serious: No
  Sender: FDA-Public Use
  Company Number: None

PATIENT

DRUGS (1)
  1. COMBIPATCH [Suspect]
     Indication: MENOPAUSE
     Dosage: CHANGE PATCH
     Route: 062
     Dates: start: 20110330, end: 20120120

REACTIONS (1)
  - SKIN IRRITATION [None]
